FAERS Safety Report 24336413 (Version 1)
Quarter: 2024Q3

REPORT INFORMATION
  Report Type: Report from Study
  Country: CN (occurrence: CN)
  Receive Date: 20240919
  Receipt Date: 20240919
  Transmission Date: 20241017
  Serious: No
  Sender: ROCHE
  Company Number: CN-ROCHE-3562789

PATIENT

DRUGS (8)
  1. OSELTAMIVIR [Suspect]
     Active Substance: OSELTAMIVIR
     Indication: Parainfluenzae virus infection
     Dosage: DOSED ACCORDING TO WEIGHT: 30 MG TWICE DAILY FOR CHILDREN OVER 1-YEAR-OLD WEIGHING {15 KG, 45 MG TWI
     Route: 065
  2. LEVOFLOXACIN [Suspect]
     Active Substance: LEVOFLOXACIN
     Indication: Acinetobacter infection
     Route: 048
  3. PIPERACILLIN SODIUM [Suspect]
     Active Substance: PIPERACILLIN SODIUM
     Indication: Pseudomonas infection
     Dosage: 100 TO 200 MG/KG/DAY FOR CHILDREN UNDER 12 YEARS
     Route: 042
  4. PIPERACILLIN SODIUM [Suspect]
     Active Substance: PIPERACILLIN SODIUM
     Indication: Staphylococcal infection
     Dosage: 50-100 MG/KG ADMINISTERED OVER 4-6 HOURS.? FREQUENCY TEXT:DAILY
     Route: 042
  5. RIBAVIRIN [Suspect]
     Active Substance: RIBAVIRIN
     Indication: Pneumonia respiratory syncytial viral
     Dosage: 10-15 MG/KG, DIVIDED INTO TWO INFUSIONS, EACH LASTING OVER 20 MINUTES, FOR 3 TO 7 DAYS.
     Route: 042
  6. RIBAVIRIN [Suspect]
     Active Substance: RIBAVIRIN
     Indication: Pneumonia viral
  7. ACYCLOVIR [Suspect]
     Active Substance: ACYCLOVIR
     Indication: Cytomegalovirus infection
     Route: 042
  8. IBUPROFEN [Suspect]
     Active Substance: IBUPROFEN
     Indication: Pyrexia
     Route: 048

REACTIONS (6)
  - Nausea [Unknown]
  - Vomiting [Unknown]
  - Rash [Unknown]
  - Diarrhoea [Unknown]
  - Headache [Unknown]
  - Drug ineffective [Unknown]
